FAERS Safety Report 5343887-0 (Version None)
Quarter: 2007Q2

REPORT INFORMATION
  Report Type: 
  Country: None (occurrence: None)
  Receive Date: 20070531
  Receipt Date: 20070531
  Transmission Date: 20071010
  Serious: Yes (Hospitalization)
  Sender: FDA-Public Use
  Company Number: None

PATIENT
  Age: 57 Year
  Sex: Female
  Weight: 63.5036 kg

DRUGS (1)
  1. AMBIEN CR [Suspect]
     Indication: INSOMNIA
     Dosage: 1 AS NEEDED PO
     Route: 048
     Dates: start: 20070511, end: 20070511

REACTIONS (8)
  - ABASIA [None]
  - ABNORMAL SLEEP-RELATED EVENT [None]
  - AMNESIA [None]
  - CONFUSIONAL STATE [None]
  - DIPLOPIA [None]
  - HALLUCINATION [None]
  - HALLUCINATION, VISUAL [None]
  - NIGHTMARE [None]
